FAERS Safety Report 13888119 (Version 1)
Quarter: 2017Q3

REPORT INFORMATION
  Report Type: Spontaneous
  Country: US (occurrence: US)
  Receive Date: 20170822
  Receipt Date: 20170822
  Transmission Date: 20171127
  Serious: No
  Sender: FDA-Public Use
  Company Number: US-ROCHE-1445206

PATIENT
  Sex: Female
  Weight: 72.64 kg

DRUGS (7)
  1. NORVASC [Concomitant]
     Active Substance: AMLODIPINE BESYLATE
  2. PRAVASTATIN. [Concomitant]
     Active Substance: PRAVASTATIN
  3. NEXIUM [Concomitant]
     Active Substance: ESOMEPRAZOLE MAGNESIUM
  4. AMBIEN [Concomitant]
     Active Substance: ZOLPIDEM TARTRATE
  5. IMURAN [Concomitant]
     Active Substance: AZATHIOPRINE
  6. ASPIRIN. [Concomitant]
     Active Substance: ASPIRIN
  7. ACTEMRA [Suspect]
     Active Substance: TOCILIZUMAB
     Indication: RHEUMATOID ARTHRITIS
     Route: 058
     Dates: start: 20130112

REACTIONS (3)
  - Fall [Unknown]
  - Infection [Unknown]
  - Rotator cuff syndrome [Unknown]
